FAERS Safety Report 6620352-1 (Version None)
Quarter: 2010Q1

REPORT INFORMATION
  Report Type: 
  Country: None (occurrence: None)
  Receive Date: 20100308
  Receipt Date: 20100308
  Transmission Date: 20100710
  Serious: Yes (Death, Hospitalization)
  Sender: FDA-Public Use
  Company Number: None

PATIENT
  Sex: Female
  Weight: 82 kg

DRUGS (2)
  1. CARBOPLATIN [Suspect]
     Dosage: 1450 MG
     Dates: end: 20100123
  2. TOPOTECAN [Suspect]
     Dosage: 15.5 MG
     Dates: end: 20100123

REACTIONS (16)
  - ABDOMINAL PAIN [None]
  - ACIDOSIS [None]
  - ANXIETY [None]
  - BACTERIAL INFECTION [None]
  - CHOLELITHIASIS [None]
  - CLOSTRIDIAL INFECTION [None]
  - DIARRHOEA [None]
  - DYSPNOEA [None]
  - DYSURIA [None]
  - FAECAL INCONTINENCE [None]
  - GASTROINTESTINAL INFLAMMATION [None]
  - GASTROINTESTINAL OEDEMA [None]
  - NAUSEA [None]
  - NEUTROPENIA [None]
  - URINARY TRACT INFECTION [None]
  - VOMITING [None]
